FAERS Safety Report 9893187 (Version 2)
Quarter: 2014Q1

REPORT INFORMATION
  Report Type: Spontaneous
  Country: CA (occurrence: CA)
  Receive Date: 20140213
  Receipt Date: 20140213
  Transmission Date: 20141002
  Serious: Yes (Other)
  Sender: FDA-Public Use
  Company Number: CA-AMGEN-CANSP2014003529

PATIENT
  Age: 64 Year
  Sex: Male

DRUGS (2)
  1. ENBREL [Suspect]
     Indication: PSORIATIC ARTHROPATHY
     Dosage: 50 MG, 2 TIMES/WK
     Route: 065
     Dates: start: 20091020, end: 20140114
  2. ENBREL [Suspect]
     Indication: PSORIASIS

REACTIONS (5)
  - Lymphoma [Unknown]
  - Metastasis [Unknown]
  - White blood cell count decreased [Unknown]
  - Cough [Unknown]
  - Hilar lymphadenopathy [Unknown]
